FAERS Safety Report 16054858 (Version 1)
Quarter: 2019Q1

REPORT INFORMATION
  Report Type: Spontaneous
  Country: US (occurrence: US)
  Receive Date: 20190310
  Receipt Date: 20190310
  Transmission Date: 20190418
  Serious: No
  Sender: FDA-Public Use
  Company Number: US-TEVA-2019-US-1022940

PATIENT

DRUGS (1)
  1. AJOVY [Suspect]
     Active Substance: FREMANEZUMAB-VFRM
     Route: 065
     Dates: start: 20181203

REACTIONS (5)
  - Ear pain [Unknown]
  - Trigeminal neuralgia [Unknown]
  - Irritability [Unknown]
  - Dizziness [Unknown]
  - Constipation [Unknown]
